FAERS Safety Report 8525571 (Version 2)
Quarter: 2012Q4

REPORT INFORMATION
  Report Type: 
  Country: DK (occurrence: DK)
  Receive Date: 20120423
  Receipt Date: 20121009
  Transmission Date: 20130627
  Serious: Yes (Hospitalization, Other)
  Sender: FDA-Public Use
  Company Number: DK-ELI_LILLY_AND_COMPANY-DK201204003333

PATIENT
  Age: 26 None
  Sex: Female
  Weight: 84 kg

DRUGS (7)
  1. ZYPREXA [Suspect]
     Indication: PSYCHOTIC DISORDER
     Dosage: 1 DF, UNK
     Route: 048
     Dates: start: 20000518, end: 20010522
  2. ZYPREXA [Suspect]
     Dosage: 30 mg, qd
     Dates: start: 20010123, end: 20010522
  3. EFEXOR [Concomitant]
     Indication: ANXIETY
     Dosage: UNK
     Route: 048
     Dates: start: 20000518
  4. CIPRAMIL [Concomitant]
     Indication: ANXIETY
     Dosage: UNK
     Route: 048
     Dates: start: 20000518
  5. OXAZEPAM [Concomitant]
  6. RISPERDAL                               /SCH/ [Concomitant]
  7. TREXALL [Concomitant]

REACTIONS (15)
  - Anxiety [Unknown]
  - Weight increased [Unknown]
  - Disturbance in attention [Unknown]
  - Memory impairment [Unknown]
  - Headache [Unknown]
  - Acne [Unknown]
  - Speech disorder [Unknown]
  - Antisocial behaviour [Unknown]
  - Fatigue [Unknown]
  - Schizophrenia, paranoid type [Unknown]
  - Depression [Unknown]
  - Dyslalia [Unknown]
  - Haemoglobin decreased [Unknown]
  - White blood cell count decreased [Unknown]
  - Prescribed overdose [Recovered/Resolved]
